FAERS Safety Report 6292815-2 (Version None)
Quarter: 2009Q3

REPORT INFORMATION
  Report Type: 
  Country: None (occurrence: None)
  Receive Date: 20090731
  Receipt Date: 20090727
  Transmission Date: 20100115
  Serious: Yes (Death, Hospitalization)
  Sender: FDA-Public Use
  Company Number: US-JNJFOC-20090709700

PATIENT
  Age: 53 Year
  Sex: Male
  Weight: 61.59 kg

DRUGS (10)
  1. DOXORUBICIN HYDROCHLORIDE (DOXILL) [Suspect]
     Dosage: 6TH CYCLE-49 MG IN TOTAL
     Route: 042
  2. DOXORUBICIN HYDROCHLORIDE (DOXILL) [Suspect]
     Indication: LYMPHOMA AIDS RELATED
     Dosage: 1ST CYCLE
     Route: 042
  3. RITUXIMAB [Suspect]
     Dosage: CYCLE 6 - 611MG IN TOTAL
     Route: 042
  4. RITUXIMAB [Suspect]
     Indication: LYMPHOMA AIDS RELATED
     Dosage: CYCLE 1
     Route: 042
  5. CYCLOPHOSPHAMIDE [Suspect]
     Dosage: CYCLE 6-1222MG IN TOTAL
     Route: 042
  6. CYCLOPHOSPHAMIDE [Suspect]
     Indication: LYMPHOMA AIDS RELATED
     Dosage: CYCLE 1
     Route: 042
  7. VINCRISTINE [Suspect]
     Dosage: CYCLE 6-2MG IN TOTAL
     Route: 042
  8. VINCRISTINE [Suspect]
     Indication: LYMPHOMA AIDS RELATED
     Dosage: CYCLE 1
     Route: 042
  9. PREDNISONE [Suspect]
     Dosage: CYCLE 6- 500MG TOTAL
     Route: 048
  10. PREDNISONE [Suspect]
     Indication: LYMPHOMA AIDS RELATED
     Dosage: CYCLE 1
     Route: 048

REACTIONS (3)
  - BLINDNESS [None]
  - LEUKOENCEPHALOPATHY [None]
  - PERIPHERAL MOTOR NEUROPATHY [None]
